FAERS Safety Report 21250361 (Version 1)
Quarter: 2022Q3

REPORT INFORMATION
  Report Type: Spontaneous
  Country: US (occurrence: US)
  Receive Date: 20220824
  Receipt Date: 20220824
  Transmission Date: 20221026
  Serious: No
  Sender: FDA-Public Use
  Company Number: US-NOVARTISTESTPH-NVSC2022US189098

PATIENT
  Sex: Female

DRUGS (1)
  1. MEKINIST [Suspect]
     Active Substance: TRAMETINIB DIMETHYL SULFOXIDE
     Indication: Cervix carcinoma
     Dosage: 2 MG, QD
     Route: 048
     Dates: start: 20220728

REACTIONS (3)
  - Acne [Unknown]
  - Oral pain [Unknown]
  - Product use in unapproved indication [Unknown]
